FAERS Safety Report 9359302 (Version 1)
Quarter: 2013Q2

REPORT INFORMATION
  Report Type: Spontaneous
  Country: US (occurrence: US)
  Receive Date: 20130620
  Receipt Date: 20130620
  Transmission Date: 20140414
  Serious: Yes (Other)
  Sender: FDA-Public Use
  Company Number: US-US-EMD SERONO, INC.-232473J10USA

PATIENT
  Age: 46 Year
  Sex: Female
  Weight: 80 kg

DRUGS (2)
  1. REBIF [Suspect]
     Indication: MULTIPLE SCLEROSIS
     Route: 058
     Dates: start: 20070629
  2. REBIF [Suspect]
     Route: 058
     Dates: end: 201002

REACTIONS (12)
  - Cerebral vasoconstriction [Not Recovered/Not Resolved]
  - Central nervous system lesion [Not Recovered/Not Resolved]
  - Disorientation [Not Recovered/Not Resolved]
  - Cognitive disorder [Not Recovered/Not Resolved]
  - Mental disorder [Not Recovered/Not Resolved]
  - Blood potassium increased [Recovered/Resolved]
  - Blood pressure increased [Recovered/Resolved]
  - Palpitations [Recovered/Resolved]
  - Disease progression [Recovered/Resolved]
  - Multiple sclerosis relapse [Recovered/Resolved]
  - Pain in extremity [Not Recovered/Not Resolved]
  - White blood cell count decreased [Recovered/Resolved]
